FAERS Safety Report 11099121 (Version 1)
Quarter: 2015Q2

REPORT INFORMATION
  Report Type: Spontaneous
  Country: US (occurrence: None)
  Receive Date: 20150506
  Receipt Date: 20150506
  Transmission Date: 20150821
  Serious: Yes (Other)
  Sender: FDA-Public Use
  Company Number: 2015HINLIT0397

PATIENT
  Age: 76 Year
  Sex: Male

DRUGS (9)
  1. THYROID [Concomitant]
     Active Substance: LEVOTHYROXINE\LIOTHYRONINE
  2. DONEPEZIL (DONEPEZIL) UNKNOWN [Suspect]
     Active Substance: DONEPEZIL
     Indication: PRODUCT USED FOR UNKNOWN INDICATION
     Dates: start: 2011
  3. FLUTICASONE (FLUTICASONE) SPRAY (EXCEPT INHALATION) [Concomitant]
  4. OMEPRAZOLE. [Concomitant]
     Active Substance: OMEPRAZOLE
  5. ANTIBIOTICS UNKNOWN [Concomitant]
     Active Substance: UNSPECIFIED INGREDIENT
  6. AMITRIPTYLINE (AMITRIPTYLINE) [Concomitant]
     Active Substance: AMITRIPTYLINE
  7. ROPINIRLE (ROPINIROLE) [Concomitant]
  8. FUROSEMIDE (FUROSEMIDE) [Concomitant]
     Active Substance: FUROSEMIDE
  9. MEMANTINE (MEMANTINE) [Concomitant]
     Active Substance: MEMANTINE

REACTIONS (9)
  - Acute kidney injury [None]
  - Pleural effusion [None]
  - Hiccups [None]
  - Urosepsis [None]
  - Hypotension [None]
  - Abnormal behaviour [None]
  - Pulmonary fibrosis [None]
  - Drug ineffective [None]
  - Off label use [None]
